FAERS Safety Report 4685799-1 (Version None)
Quarter: 2005Q2

REPORT INFORMATION
  Report Type: 
  Country: None (occurrence: None)
  Receive Date: 20050606
  Receipt Date: 20050606
  Transmission Date: 20051028
  Serious: Yes (Other)
  Sender: FDA-Public Use
  Company Number: None

PATIENT
  Age: 39 Year
  Sex: Female
  Weight: 80.7403 kg

DRUGS (5)
  1. FACTIVE [Suspect]
     Indication: BRONCHITIS
     Dosage: 320 MG 1 PO DAILY
     Route: 048
     Dates: start: 20050509, end: 20050515
  2. FACTIVE [Suspect]
     Indication: SINUSITIS
     Dosage: 320 MG 1 PO DAILY
     Route: 048
     Dates: start: 20050509, end: 20050515
  3. ROBITUSSIN DAC [Concomitant]
  4. CLARINEX [Concomitant]
  5. ESTRASTEP [Concomitant]

REACTIONS (5)
  - ANXIETY [None]
  - BODY TEMPERATURE INCREASED [None]
  - PRURITUS [None]
  - RASH ERYTHEMATOUS [None]
  - RASH PAPULAR [None]
